FAERS Safety Report 5167296-2 (Version None)
Quarter: 2006Q4

REPORT INFORMATION
  Report Type: 
  Country: None (occurrence: None)
  Receive Date: 20061130
  Receipt Date: 20061114
  Transmission Date: 20070319
  Serious: Yes (Hospitalization)
  Sender: FDA-Public Use
  Company Number: 2006RL000168

PATIENT
  Age: 65 Year
  Sex: Female
  Weight: 105.2345 kg

DRUGS (17)
  1. RYTHMOL [Suspect]
     Indication: ATRIAL FIBRILLATION
     Dosage: 325 MG; BID; PO
     Route: 048
     Dates: start: 20060505, end: 20060512
  2. WARFARIN SODIUM [Concomitant]
  3. ENOXAPARIN SODIUM [Concomitant]
  4. ALTACE [Concomitant]
  5. ACTOS [Concomitant]
  6. ZOLOFT [Concomitant]
  7. ATIVAN [Concomitant]
  8. DITROPAN [Concomitant]
  9. VYTORIN [Concomitant]
  10. GLIMEPIRIDE [Concomitant]
  11. PREMARIN [Concomitant]
  12. LOMOTIL [Concomitant]
  13. ZOCOR [Concomitant]
  14. ZETIA [Concomitant]
  15. MORPHINE SULFATE [Concomitant]
  16. PROPAFENONE HYDROCHLORIDE [Concomitant]
  17. METOPROLOL TARTRATE [Concomitant]

REACTIONS (16)
  - BLOOD CALCIUM ABNORMAL [None]
  - BLOOD CHLORIDE ABNORMAL [None]
  - BLOOD GLUCOSE ABNORMAL [None]
  - BLOOD POTASSIUM ABNORMAL [None]
  - BLOOD PRESSURE INADEQUATELY CONTROLLED [None]
  - CARBON DIOXIDE ABNORMAL [None]
  - CARDIAC FAILURE CONGESTIVE [None]
  - DIASTOLIC DYSFUNCTION [None]
  - DRUG INTOLERANCE [None]
  - GASTROOESOPHAGEAL REFLUX DISEASE [None]
  - HAEMATOCRIT ABNORMAL [None]
  - HYPERTENSION [None]
  - INTERNATIONAL NORMALISED RATIO INCREASED [None]
  - PAIN [None]
  - PROTHROMBIN TIME ABNORMAL [None]
  - RED BLOOD CELL COUNT ABNORMAL [None]
